FAERS Safety Report 23196490 (Version 1)
Quarter: 2023Q4

REPORT INFORMATION
  Report Type: Spontaneous
  Country: US (occurrence: None)
  Receive Date: 20231116
  Receipt Date: 20231116
  Transmission Date: 20240109
  Serious: Yes (Other)
  Sender: FDA-Public Use
  Company Number: None

PATIENT
  Age: 48 Year
  Sex: Female
  Weight: 108.45 kg

DRUGS (5)
  1. CABENUVA [Suspect]
     Active Substance: CABOTEGRAVIR\RILPIVIRINE
     Indication: HIV infection
     Dosage: OTHER FREQUENCY : EVERY 2 MONTHS;?
     Route: 030
     Dates: start: 20220719
  2. RELAFEN [Concomitant]
     Active Substance: NABUMETONE
     Dates: start: 20220930
  3. HYDROCHLOROTHIAZIDE\LISINOPRIL [Concomitant]
     Active Substance: HYDROCHLOROTHIAZIDE\LISINOPRIL
     Dates: start: 20160629
  4. metFORMIN (GLUCOPHAGE XR) [Concomitant]
     Dates: start: 20221115
  5. ATORVASTATIN [Concomitant]
     Active Substance: ATORVASTATIN
     Dates: start: 20221115

REACTIONS (6)
  - Rash [None]
  - Injection site vesicles [None]
  - Chills [None]
  - Pyrexia [None]
  - Skin discolouration [None]
  - Contusion [None]

NARRATIVE: CASE EVENT DATE: 20231107
